FAERS Safety Report 7273604-9 (Version None)
Quarter: 2011Q1

REPORT INFORMATION
  Report Type: 
  Country: None (occurrence: None)
  Receive Date: 20110203
  Receipt Date: 20110128
  Transmission Date: 20110831
  Serious: Yes (Other)
  Sender: FDA-Public Use
  Company Number: GB-AMGEN-GBRSP2011005567

PATIENT
  Age: 59 Year
  Sex: Female
  Weight: 62.7 kg

DRUGS (4)
  1. CYCLOPHOSPHAMIDE [Concomitant]
     Indication: BREAST CANCER
     Route: 042
  2. NEULASTA [Suspect]
     Indication: SECONDARY IMMUNODEFICIENCY
     Dosage: 6 MG, UNK
     Route: 058
     Dates: start: 20101208, end: 20110120
  3. FLUOROURACIL [Concomitant]
     Indication: BREAST CANCER
     Route: 042
  4. EPIRUBICIN [Concomitant]
     Indication: BREAST CANCER
     Route: 042

REACTIONS (2)
  - GENERALISED ERYTHEMA [None]
  - DYSPNOEA [None]
